FAERS Safety Report 4932381-4 (Version None)
Quarter: 2006Q1

REPORT INFORMATION
  Report Type: 
  Country: None (occurrence: None)
  Receive Date: 20060228
  Receipt Date: 20060208
  Transmission Date: 20060701
  Serious: Yes (Hospitalization, Disabling)
  Sender: FDA-Public Use
  Company Number: 416080

PATIENT
  Age: 21 Year
  Sex: Male
  Weight: 95.3 kg

DRUGS (2)
  1. ACCUTANE [Suspect]
     Indication: ACNE
     Dosage: ORAL
     Route: 048
     Dates: start: 19860715, end: 19861115
  2. ASACOL [Suspect]
     Indication: COLITIS ULCERATIVE
     Dosage: 4.8 GRAM DAILY ORAL
     Route: 048
     Dates: start: 19940609

REACTIONS (27)
  - ANHEDONIA [None]
  - ANXIETY [None]
  - ATRIOVENTRICULAR BLOCK FIRST DEGREE [None]
  - BLINDNESS [None]
  - BRONCHITIS [None]
  - COLITIS [None]
  - COLITIS ULCERATIVE [None]
  - DIZZINESS [None]
  - GASTROINTESTINAL DISORDER [None]
  - HAND FRACTURE [None]
  - HEPATIC STEATOSIS [None]
  - INFLAMMATORY BOWEL DISEASE [None]
  - INJURY [None]
  - INTESTINAL HAEMORRHAGE [None]
  - IRRITABLE BOWEL SYNDROME [None]
  - LABYRINTHITIS [None]
  - MELANOCYTIC NAEVUS [None]
  - MULTI-ORGAN DISORDER [None]
  - PAIN [None]
  - PANCREATITIS [None]
  - RECTAL HAEMORRHAGE [None]
  - SINUSITIS [None]
  - TRAUMATIC FRACTURE [None]
  - UPPER RESPIRATORY TRACT INFECTION [None]
  - VERTIGO [None]
  - VISUAL DISTURBANCE [None]
  - WOUND [None]
